FAERS Safety Report 4377286-5 (Version None)
Quarter: 2004Q2

REPORT INFORMATION
  Report Type: 
  Country: None (occurrence: None)
  Receive Date: 20040609
  Receipt Date: 20040305
  Transmission Date: 20050107
  Serious: No
  Sender: FDA-Public Use
  Company Number: 2004202591US

PATIENT
  Age: 72 Year
  Sex: Male

DRUGS (8)
  1. BEXTRA [Suspect]
     Indication: ARTHRITIS
     Dosage: 10 MG, BID, UNK
     Dates: start: 20040304
  2. ATENOLOL [Concomitant]
  3. HYDROCHLOROTHIAZIDE [Concomitant]
  4. TRICOR [Concomitant]
  5. IRBESARTAN (IRBESARTAN) [Concomitant]
  6. ASPIRIN [Concomitant]
  7. METFORMIN HCL [Concomitant]
  8. INSULIN [Concomitant]

REACTIONS (3)
  - ABDOMINAL PAIN UPPER [None]
  - FEELING ABNORMAL [None]
  - HYPERHIDROSIS [None]
